FAERS Safety Report 7655967-5 (Version None)
Quarter: 2011Q3

REPORT INFORMATION
  Report Type: 
  Country: None (occurrence: None)
  Receive Date: 20110804
  Receipt Date: 20110728
  Transmission Date: 20111222
  Serious: Yes (Hospitalization, Other)
  Sender: FDA-Public Use
  Company Number: CA-ROCHE-782334

PATIENT
  Sex: Male

DRUGS (6)
  1. COPEGUS [Suspect]
     Route: 048
     Dates: start: 20100730, end: 20110630
  2. METFORMIN HCL [Concomitant]
     Route: 048
  3. EPREX [Concomitant]
     Dosage: DOSE: 40000
     Route: 058
     Dates: start: 20101015, end: 20110607
  4. PEGASYS [Suspect]
     Indication: HEPATITIS C
     Route: 058
     Dates: start: 20100729, end: 20110606
  5. PEGASYS [Suspect]
     Route: 058
     Dates: end: 20110623
  6. COPEGUS [Suspect]
     Indication: HEPATITIS C
     Route: 048
     Dates: start: 20100729, end: 20110606

REACTIONS (2)
  - HAEMOGLOBIN DECREASED [None]
  - HEPATIC ENCEPHALOPATHY [None]
